FAERS Safety Report 8619181-9 (Version None)
Quarter: 2012Q3

REPORT INFORMATION
  Report Type: 
  Country: None (occurrence: None)
  Receive Date: 20120824
  Receipt Date: 20120815
  Transmission Date: 20120928
  Serious: Yes (Other)
  Sender: FDA-Public Use
  Company Number: US-BAYER-2012-053491

PATIENT
  Age: 18 Year
  Sex: Female
  Weight: 89.796 kg

DRUGS (2)
  1. MIRENA [Suspect]
     Indication: CONTRACEPTION
     Dosage: 20 MCG/24HR, UNK
     Route: 015
     Dates: start: 20090901, end: 20110830
  2. PITUITARY HORMONE, ANTERIOR LOBE [Concomitant]
     Dosage: 10 MG, UNK

REACTIONS (17)
  - VAGINAL DISCHARGE [None]
  - AMENORRHOEA [None]
  - MEDICAL DEVICE DISCOMFORT [None]
  - FATIGUE [None]
  - CERVICITIS [None]
  - VULVOVAGINAL CANDIDIASIS [None]
  - FEELING ABNORMAL [None]
  - URINARY TRACT INFECTION [None]
  - DYSURIA [None]
  - MUSCLE SPASMS [None]
  - PAIN IN EXTREMITY [None]
  - VULVOVAGINAL PRURITUS [None]
  - BREAST TENDERNESS [None]
  - MENORRHAGIA [None]
  - PELVIC PAIN [None]
  - VAGINITIS BACTERIAL [None]
  - VAGINAL ODOUR [None]
